FAERS Safety Report 9886152 (Version 1)
Quarter: 2014Q1

REPORT INFORMATION
  Report Type: Spontaneous
  Country: US (occurrence: US)
  Receive Date: 20140210
  Receipt Date: 20140210
  Transmission Date: 20141002
  Serious: No
  Sender: FDA-Public Use
  Company Number: US-TEVA-459579USA

PATIENT
  Age: 74 Year
  Sex: Female
  Weight: 68.1 kg

DRUGS (5)
  1. AZILECT [Suspect]
     Indication: PARKINSON^S DISEASE
     Dosage: 10
  2. CARBIDOPA/LEVODOPA [Concomitant]
     Indication: PARKINSON^S DISEASE
     Dosage: 75 MILLIGRAM DAILY;
     Route: 048
  3. METOPROLOL [Concomitant]
     Indication: MYOCARDIAL INFARCTION
     Dosage: 12.5 MILLIGRAM DAILY;
     Route: 048
  4. SIMVASTATIN [Concomitant]
     Indication: HYPERCHOLESTEROLAEMIA
     Dosage: 40 MILLIGRAM DAILY;
     Route: 048
  5. CLOPIDOGREL [Concomitant]
     Indication: PROPHYLAXIS
     Dosage: 75 MILLIGRAM DAILY;
     Route: 048

REACTIONS (1)
  - Dizziness [Recovered/Resolved]
